FAERS Safety Report 5943762-4 (Version None)
Quarter: 2008Q4

REPORT INFORMATION
  Report Type: 
  Country: None (occurrence: None)
  Receive Date: 20081106
  Receipt Date: 20081025
  Transmission Date: 20090506
  Serious: Yes (Hospitalization, Other)
  Sender: FDA-Public Use
  Company Number: US-PFIZER INC-2008078919

PATIENT
  Sex: Female
  Weight: 94 kg

DRUGS (8)
  1. LYRICA [Suspect]
     Indication: NEURALGIA
     Route: 048
     Dates: start: 20080201, end: 20080505
  2. LYRICA [Suspect]
     Indication: RADICULAR PAIN
  3. NEXIUM [Concomitant]
     Indication: GASTROOESOPHAGEAL REFLUX DISEASE
  4. CARDIAC THERAPY [Concomitant]
  5. RELPAX [Concomitant]
  6. NORCO [Concomitant]
  7. METHOCARBAMOL [Concomitant]
  8. FLORINEF [Concomitant]

REACTIONS (9)
  - ACTIVITIES OF DAILY LIVING IMPAIRED [None]
  - DEHYDRATION [None]
  - DIARRHOEA [None]
  - EAR NEOPLASM [None]
  - FLUID RETENTION [None]
  - INTENTIONAL DRUG MISUSE [None]
  - MEDICATION ERROR [None]
  - SEDATION [None]
  - VERTIGO [None]
